FAERS Safety Report 9970044 (Version 1)
Quarter: 2014Q1

REPORT INFORMATION
  Report Type: Spontaneous
  Country: AU (occurrence: None)
  Receive Date: 20140304
  Receipt Date: 20140304
  Transmission Date: 20141002
  Serious: Yes (Other)
  Sender: FDA-Public Use
  Company Number: 2014000058

PATIENT
  Sex: Female

DRUGS (4)
  1. ACEON (PERINDOPRIL ERBUMINE) TABLET [Suspect]
     Indication: PRODUCT USED FOR UNKNOWN INDICATION
  2. ABILIFY (ARIPIPRAZOLE) [Suspect]
     Indication: PRODUCT USED FOR UNKNOWN INDICATION
  3. LITHICARB [Suspect]
     Indication: PRODUCT USED FOR UNKNOWN INDICATION
  4. QUILONIUM-R [Suspect]
     Indication: PRODUCT USED FOR UNKNOWN INDICATION

REACTIONS (11)
  - Drug interaction [None]
  - Neuroleptic malignant syndrome [None]
  - Amnesia [None]
  - Blood glucose increased [None]
  - Diabetes insipidus [None]
  - Temperature regulation disorder [None]
  - Blood cholesterol increased [None]
  - Rhinorrhoea [None]
  - Visual field defect [None]
  - Blood pressure fluctuation [None]
  - Antipsychotic drug level increased [None]
